FAERS Safety Report 17391553 (Version 1)
Quarter: 2020Q1

REPORT INFORMATION
  Report Type: Report from Study
  Country: US (occurrence: US)
  Receive Date: 20200207
  Receipt Date: 20200207
  Transmission Date: 20200409
  Serious: Yes (Hospitalization)
  Sender: FDA-Public Use
  Company Number: US-EXELIXIS-CABO-19026411

PATIENT
  Sex: Female

DRUGS (1)
  1. CABOMETYX [Suspect]
     Active Substance: CABOZANTINIB S-MALATE
     Indication: RENAL CANCER
     Dosage: 40 MG, QD
     Dates: start: 20191122, end: 20200110

REACTIONS (6)
  - Rash [Unknown]
  - Malignant neoplasm progression [Unknown]
  - Paranoia [Unknown]
  - Diarrhoea [Recovered/Resolved]
  - Renal failure [Unknown]
  - Nausea [Recovered/Resolved]
